FAERS Safety Report 20483436 (Version 1)
Quarter: 2022Q1

REPORT INFORMATION
  Report Type: Report from Study
  Country: CN (occurrence: CN)
  Receive Date: 20220217
  Receipt Date: 20220217
  Transmission Date: 20220424
  Serious: Yes (Death, Life-Threatening, Hospitalization, Other)
  Sender: FDA-Public Use
  Company Number: CN-BRISTOL-MYERS SQUIBB COMPANY-BMS-2021-117713

PATIENT
  Age: 62 Year
  Sex: Male
  Weight: 61 kg

DRUGS (5)
  1. NIVOLUMAB [Suspect]
     Active Substance: NIVOLUMAB
     Indication: Non-small cell lung cancer
     Dosage: 360 MILLIGRAM
     Route: 042
     Dates: start: 20201113, end: 20211015
  2. CARBOPLATIN [Suspect]
     Active Substance: CARBOPLATIN
     Indication: Non-small cell lung cancer
     Dosage: 564 MILLIGRAM
     Route: 042
     Dates: start: 20201113, end: 20201229
  3. PACLITAXEL [Suspect]
     Active Substance: PACLITAXEL
     Indication: Non-small cell lung cancer
     Dosage: 296 MILLIGRAM
     Route: 042
     Dates: start: 20201113, end: 20201229
  4. AMINOPOLYPEPTIDE [Concomitant]
     Indication: Product used for unknown indication
     Dosage: 1 GRAM, TID
     Route: 048
     Dates: start: 20211205, end: 20211208
  5. GLYCERINE ENEMA [Concomitant]
     Indication: Product used for unknown indication
     Dosage: 1 DOSAGE FORM= 80 UNITS NOS, AS NEEDED
     Route: 050
     Dates: start: 20211114, end: 20211127

REACTIONS (1)
  - Immune-mediated lung disease [Fatal]

NARRATIVE: CASE EVENT DATE: 20211104
